FAERS Safety Report 13506435 (Version 1)
Quarter: 2017Q2

REPORT INFORMATION
  Report Type: Spontaneous
  Country: US (occurrence: US)
  Receive Date: 20170502
  Receipt Date: 20170502
  Transmission Date: 20170830
  Serious: No
  Sender: FDA-Public Use
  Company Number: US-ROCHE-1338689

PATIENT
  Sex: Female

DRUGS (3)
  1. AVASTIN [Suspect]
     Active Substance: BEVACIZUMAB
     Indication: MACULAR DEGENERATION
     Dosage: RIGHT EYE
     Route: 050
     Dates: end: 20131127
  2. LUCENTIS [Suspect]
     Active Substance: RANIBIZUMAB
     Indication: MACULAR DEGENERATION
     Route: 050
     Dates: start: 201312
  3. ATENOLOL. [Concomitant]
     Active Substance: ATENOLOL
     Route: 048

REACTIONS (4)
  - Injection site pain [Recovered/Resolved]
  - Eye swelling [Recovered/Resolved]
  - Injection site reaction [Recovered/Resolved]
  - Arthralgia [Not Recovered/Not Resolved]
